FAERS Safety Report 9016747 (Version 4)
Quarter: 2013Q4

REPORT INFORMATION
  Report Type: Spontaneous
  Country: US (occurrence: US)
  Receive Date: 20130116
  Receipt Date: 20131107
  Transmission Date: 20140711
  Serious: Yes (Hospitalization, Other)
  Sender: FDA-Public Use
  Company Number: US-PFIZER INC-2013017813

PATIENT
  Age: 55 Year
  Sex: Female
  Weight: 74.83 kg

DRUGS (2)
  1. LYRICA [Suspect]
     Indication: FIBROMYALGIA
     Dosage: UNK
  2. LYRICA [Suspect]
     Dosage: 75 MG, 3X/DAY
     Dates: start: 2013

REACTIONS (6)
  - Rectal cancer [Unknown]
  - Memory impairment [Unknown]
  - Confusional state [Unknown]
  - Encephalopathy [Unknown]
  - White blood cell count decreased [Unknown]
  - Platelet count decreased [Unknown]
